FAERS Safety Report 18067591 (Version 2)
Quarter: 2021Q1

REPORT INFORMATION
  Report Type: Spontaneous
  Country: US (occurrence: US)
  Receive Date: 20200724
  Receipt Date: 20210209
  Transmission Date: 20210419
  Serious: No
  Sender: FDA-Public Use
  Company Number: US-SA-2020SA187205

PATIENT
  Age: 31 Year
  Sex: Female

DRUGS (3)
  1. DUPIXENT [Suspect]
     Active Substance: DUPILUMAB
     Indication: CHRONIC SINUSITIS
     Dosage: 300 MG, QOW
     Route: 058
     Dates: start: 20200617
  2. NORMAL SALINE [Concomitant]
     Active Substance: SODIUM CHLORIDE
  3. BUDESONIDE. [Concomitant]
     Active Substance: BUDESONIDE

REACTIONS (1)
  - Drug ineffective for unapproved indication [Unknown]

NARRATIVE: CASE EVENT DATE: 20200617
